FAERS Safety Report 25751454 (Version 2)
Quarter: 2025Q3

REPORT INFORMATION
  Report Type: Spontaneous
  Country: EU (occurrence: EU)
  Receive Date: 20250902
  Receipt Date: 20250917
  Transmission Date: 20251020
  Serious: Yes (Other)
  Sender: MYLAN
  Company Number: None

PATIENT
  Age: 68 Year
  Sex: Female
  Weight: 68 kg

DRUGS (5)
  1. PREGABALIN [Suspect]
     Active Substance: PREGABALIN
     Indication: Product used for unknown indication
  2. LOBIDIUR [Concomitant]
     Active Substance: HYDROCHLOROTHIAZIDE\NEBIVOLOL HYDROCHLORIDE
  3. LACIDIPINE [Concomitant]
     Active Substance: LACIDIPINE
  4. OMEPRAZOLE [Concomitant]
     Active Substance: OMEPRAZOLE
  5. ACETAMINOPHEN [Concomitant]
     Active Substance: ACETAMINOPHEN

REACTIONS (6)
  - Stevens-Johnson syndrome [Recovering/Resolving]
  - Skin discolouration [Recovering/Resolving]
  - Contusion [Recovering/Resolving]
  - Lymphadenopathy [Recovering/Resolving]
  - Skin lesion [Recovering/Resolving]
  - Face oedema [Recovering/Resolving]
